FAERS Safety Report 8621520-X (Version None)
Quarter: 2012Q3

REPORT INFORMATION
  Report Type: 
  Country: None (occurrence: None)
  Receive Date: 20120824
  Receipt Date: 20120501
  Transmission Date: 20120928
  Serious: Yes (Other)
  Sender: FDA-Public Use
  Company Number: ES-009507513-2012SP005357

PATIENT

DRUGS (5)
  1. RIBAVIRIN [Suspect]
     Indication: HEPATIC CIRRHOSIS
  2. RIBAVIRIN [Suspect]
     Indication: HEPATITIS C
     Dosage: 1200 MG, QD
     Route: 065
     Dates: start: 20111201
  3. BOCEPREVIR [Suspect]
     Indication: HEPATIC CIRRHOSIS
  4. BOCEPREVIR [Suspect]
     Indication: HEPATITIS C
     Dosage: 800 MG, TID
     Route: 065
     Dates: start: 20111201, end: 20111201
  5. PEGINTERFERON ALFA-2A [Suspect]
     Dosage: 180 ?G, QW
     Route: 065
     Dates: start: 20111201

REACTIONS (2)
  - CAECITIS [None]
  - NEUTROPENIC COLITIS [None]
